FAERS Safety Report 4565088-6 (Version None)
Quarter: 2005Q1

REPORT INFORMATION
  Report Type: 
  Country: None (occurrence: None)
  Receive Date: 20050126
  Receipt Date: 20050117
  Transmission Date: 20050727
  Serious: Yes (Hospitalization)
  Sender: FDA-Public Use
  Company Number: 2005UW00787

PATIENT
  Age: 62 Year
  Sex: Female

DRUGS (4)
  1. ARIMIDEX [Suspect]
     Indication: BREAST CANCER
     Dosage: 1 MG PO
     Route: 048
     Dates: start: 20040601
  2. NOVASEN [Concomitant]
  3. LIPITOR [Concomitant]
  4. CALCIUM GLUCONATE [Concomitant]

REACTIONS (4)
  - COUGH [None]
  - DIZZINESS [None]
  - HEMIPLEGIA [None]
  - HOT FLUSH [None]
